FAERS Safety Report 11616352 (Version 3)
Quarter: 2017Q1

REPORT INFORMATION
  Report Type: Spontaneous
  Country: US (occurrence: US)
  Receive Date: 20151009
  Receipt Date: 20170126
  Transmission Date: 20170428
  Serious: Yes (Death, Other)
  Sender: FDA-Public Use
  Company Number: US-INDIVIOR-INDV-083865-2015

PATIENT
  Age: 31 Year
  Sex: Female

DRUGS (2)
  1. SUBOXONE [Suspect]
     Active Substance: BUPRENORPHINE HYDROCHLORIDE\NALOXONE HYDROCHLORIDE
     Indication: DRUG DEPENDENCE
     Dosage: UNK
     Route: 065
  2. XANAX [Suspect]
     Active Substance: ALPRAZOLAM
     Indication: PRODUCT USED FOR UNKNOWN INDICATION
     Dosage: UNK

REACTIONS (10)
  - Vomiting in pregnancy [Unknown]
  - Drug withdrawal syndrome [Unknown]
  - Abnormal behaviour [Unknown]
  - Decreased appetite [Unknown]
  - Myocardial infarction [Fatal]
  - Blood electrolytes decreased [Fatal]
  - Loss of consciousness [None]
  - Maternal exposure during pregnancy [Recovered/Resolved]
  - Fall [Recovered/Resolved]
  - Urinary incontinence [Unknown]

NARRATIVE: CASE EVENT DATE: 2014
